FAERS Safety Report 8482332-3 (Version None)
Quarter: 2012Q3

REPORT INFORMATION
  Report Type: 
  Country: None (occurrence: None)
  Receive Date: 20120702
  Receipt Date: 20120622
  Transmission Date: 20120928
  Serious: Yes (Other)
  Sender: FDA-Public Use
  Company Number: US-ASTRAZENECA-2012SE32259

PATIENT
  Age: 53 Year
  Sex: Female
  Weight: 88.5 kg

DRUGS (7)
  1. COZAAR [Concomitant]
  2. LIPITOR [Suspect]
     Route: 048
     Dates: start: 20060101
  3. CRESTOR [Suspect]
     Indication: HYPERLIPIDAEMIA
     Route: 048
     Dates: start: 20050101, end: 20060101
  4. LANTUS [Concomitant]
  5. LIPITOR [Suspect]
     Indication: HYPERLIPIDAEMIA
     Route: 048
     Dates: start: 20010101
  6. ACTOS [Concomitant]
  7. COREG [Concomitant]

REACTIONS (1)
  - MYOCARDIAL INFARCTION [None]
